FAERS Safety Report 6597722-3 (Version None)
Quarter: 2010Q1

REPORT INFORMATION
  Report Type: 
  Country: None (occurrence: None)
  Receive Date: 20100216
  Receipt Date: 20100204
  Transmission Date: 20100710
  Serious: Yes (Death, Life-Threatening, Hospitalization)
  Sender: FDA-Public Use
  Company Number: 2010000134

PATIENT
  Age: 69 Year
  Sex: Male
  Weight: 88 kg

DRUGS (2)
  1. TREANDA [Suspect]
     Indication: MANTLE CELL LYMPHOMA
     Dosage: (143 MG, CYCLIC), INTRAVENOUS
     Route: 042
     Dates: start: 20091017, end: 20091213
  2. RITUXIMAB (RITUXIMAB) [Suspect]
     Indication: MANTLE CELL LYMPHOMA
     Dosage: (767 MG, CYCLIC), INTRAVENOUS
     Route: 042
     Dates: start: 20091016, end: 20091211

REACTIONS (4)
  - CD4 LYMPHOCYTES DECREASED [None]
  - DYSPNOEA [None]
  - INFECTION [None]
  - PNEUMOCYSTIS JIROVECI INFECTION [None]
